FAERS Safety Report 11054027 (Version 2)
Quarter: 2015Q2

REPORT INFORMATION
  Report Type: Spontaneous
  Country: KR (occurrence: KR)
  Receive Date: 20150422
  Receipt Date: 20150428
  Transmission Date: 20150821
  Serious: Yes (Other)
  Sender: FDA-Public Use
  Company Number: KR-AMGEN-KORSP2015038639

PATIENT
  Age: 60 Year
  Sex: Female

DRUGS (1)
  1. ROMIPLATE [Suspect]
     Active Substance: ROMIPLOSTIM
     Indication: IMMUNE THROMBOCYTOPENIC PURPURA
     Dosage: 1-5 MUG/KG, QWK
     Route: 058

REACTIONS (4)
  - Cough [Unknown]
  - Asthenia [Unknown]
  - Haemorrhage [Unknown]
  - Drug ineffective [Unknown]
